FAERS Safety Report 10246074 (Version 2)
Quarter: 2014Q2

REPORT INFORMATION
  Report Type: Spontaneous
  Country: US (occurrence: None)
  Receive Date: 20140617
  Receipt Date: 20140630
  Transmission Date: 20141212
  Serious: Yes (Other)
  Sender: FDA-Public Use
  Company Number: 2014VER00011

PATIENT
  Age: 14 Year
  Sex: Male

DRUGS (4)
  1. MYORISAN [Suspect]
     Indication: ACNE CYSTIC
     Dosage: 1X/DAY
     Route: 048
     Dates: start: 20140415, end: 20140505
  2. RISPERDAL [Concomitant]
  3. MIRALAX [Concomitant]
  4. COLACE [Concomitant]

REACTIONS (3)
  - Mood altered [None]
  - Aggression [None]
  - Anger [None]
